FAERS Safety Report 12075091 (Version 2)
Quarter: 2016Q1

REPORT INFORMATION
  Report Type: Report from Study
  Country: US (occurrence: US)
  Receive Date: 20160212
  Receipt Date: 20160325
  Transmission Date: 20160526
  Serious: Yes (Hospitalization)
  Sender: FDA-Public Use
  Company Number: US-ASTRAZENECA-2016SE09838

PATIENT
  Age: 25119 Day
  Sex: Male
  Weight: 66.2 kg

DRUGS (1)
  1. AZD6140 [Suspect]
     Active Substance: TICAGRELOR
     Indication: VASCULAR STENT RESTENOSIS
     Route: 048
     Dates: start: 20131202

REACTIONS (1)
  - Cardiac failure congestive [Recovered/Resolved]

NARRATIVE: CASE EVENT DATE: 20160121
